FAERS Safety Report 19926097 (Version 1)
Quarter: 2021Q4

REPORT INFORMATION
  Report Type: Spontaneous
  Country: US (occurrence: US)
  Receive Date: 20211006
  Receipt Date: 20211006
  Transmission Date: 20220303
  Serious: Yes (Death, Other)
  Sender: FDA-Public Use
  Company Number: US-AMGEN-USASP2021152248

PATIENT

DRUGS (1)
  1. BEVACIZUMAB [Suspect]
     Active Substance: BEVACIZUMAB
     Indication: Glioma
     Dosage: UNK
     Route: 065

REACTIONS (6)
  - Death [Fatal]
  - Glioma [Unknown]
  - Central nervous system necrosis [Unknown]
  - Seizure [Unknown]
  - Fatigue [Unknown]
  - Nausea [Unknown]
